FAERS Safety Report 9709374 (Version 3)
Quarter: 2014Q2

REPORT INFORMATION
  Report Type: Spontaneous
  Country: US (occurrence: US)
  Receive Date: 20131126
  Receipt Date: 20140402
  Transmission Date: 20141212
  Serious: Yes (Death)
  Sender: FDA-Public Use
  Company Number: US-AMGEN-USASP2013081894

PATIENT
  Age: 87 Year
  Sex: Male

DRUGS (1)
  1. PROLIA [Suspect]
     Indication: OSTEOPOROSIS
     Route: 065

REACTIONS (3)
  - Cardiac failure congestive [Fatal]
  - Hypotension [Fatal]
  - Sepsis [Fatal]
